FAERS Safety Report 6900741 (Version 4)
Quarter: 2013Q1

REPORT INFORMATION
  Report Type: Spontaneous
  Country: IT (occurrence: IT)
  Receive Date: 20090204
  Receipt Date: 20130222
  Transmission Date: 20140127
  Serious: Yes (Hospitalization)
  Sender: FDA-Public Use
  Company Number: IT-ELI_LILLY_AND_COMPANY-IT200901005473

PATIENT
  Age: 40 Year
  Sex: Female

DRUGS (1)
  1. GEMZAR [Suspect]
     Indication: LEIOMYOSARCOMA METASTATIC
     Dosage: 1000 MG/M2, DAYS 1, 8 AND 15
     Route: 042
     Dates: start: 20080715, end: 20081007

REACTIONS (2)
  - Posterior reversible encephalopathy syndrome [Recovered/Resolved]
  - Hypertension [Recovering/Resolving]
